FAERS Safety Report 7762765-0 (Version None)
Quarter: 2011Q3

REPORT INFORMATION
  Report Type: 
  Country: None (occurrence: None)
  Receive Date: 20110920
  Receipt Date: 20110913
  Transmission Date: 20111222
  Serious: Yes (Other)
  Sender: FDA-Public Use
  Company Number: CH-ASTRAZENECA-2011SE55460

PATIENT
  Age: 63 Year
  Sex: Female
  Weight: 83 kg

DRUGS (2)
  1. KONAKION [Suspect]
     Route: 041
     Dates: start: 20110824, end: 20110826
  2. ESOMEPRAZOLE SODIUM [Suspect]
     Route: 041
     Dates: start: 20110824, end: 20110826

REACTIONS (2)
  - INJECTION SITE VESICLES [None]
  - INJECTION SITE ERYTHEMA [None]
